FAERS Safety Report 24329237 (Version 1)
Quarter: 2024Q3

REPORT INFORMATION
  Report Type: Spontaneous
  Country: SI (occurrence: SI)
  Receive Date: 20240917
  Receipt Date: 20240917
  Transmission Date: 20241016
  Serious: Yes (Hospitalization, Other)
  Sender: SANDOZ
  Company Number: SI-002147023-NVSC2020SI262657

PATIENT
  Age: 83 Year
  Sex: Male

DRUGS (15)
  1. ALFACALCIDOL [Suspect]
     Active Substance: ALFACALCIDOL
     Indication: Product used for unknown indication
     Dosage: 0.5 UG
     Route: 065
  2. ARANESP [Suspect]
     Active Substance: DARBEPOETIN ALFA
     Indication: Product used for unknown indication
     Dosage: UNK, Q2W (100 + 150 MCG EVERY 14 DAY)
     Route: 065
  3. BISOPROLOL [Suspect]
     Active Substance: BISOPROLOL\BISOPROLOL FUMARATE
     Indication: Product used for unknown indication
     Dosage: 2.5 MG (IN THE MORNING)
     Route: 065
  4. CEFTRIAXONE [Suspect]
     Active Substance: CEFTRIAXONE\CEFTRIAXONE SODIUM
     Indication: Device related sepsis
     Dosage: 2 G, QD (2 GRAM PER 24 HOURS, DAY 5)
     Route: 042
     Dates: start: 202009
  5. CEFTRIAXONE [Suspect]
     Active Substance: CEFTRIAXONE\CEFTRIAXONE SODIUM
     Dosage: UNK (CONTINUE THERAPY, DAY 9)
     Route: 065
     Dates: start: 202009
  6. CEFTRIAXONE [Suspect]
     Active Substance: CEFTRIAXONE\CEFTRIAXONE SODIUM
     Dosage: UNK (DISCONTINUED, DAY 11)
     Route: 065
     Dates: start: 202009
  7. FOLIC ACID [Suspect]
     Active Substance: FOLIC ACID
     Indication: Product used for unknown indication
     Dosage: UNK (2 X 1 TBL)
     Route: 065
  8. ACETAMINOPHEN [Suspect]
     Active Substance: ACETAMINOPHEN
     Indication: Product used for unknown indication
     Dosage: 500 MG, PRN
     Route: 065
  9. LACIDIPINE [Suspect]
     Active Substance: LACIDIPINE
     Indication: Product used for unknown indication
     Dosage: 4 MG
     Route: 065
  10. WARFARIN SODIUM [Suspect]
     Active Substance: WARFARIN SODIUM
     Indication: Product used for unknown indication
     Dosage: UNK (ACCORDING TO THE SCHEME)
     Route: 065
  11. PANTOPRAZOLE SODIUM [Suspect]
     Active Substance: PANTOPRAZOLE SODIUM
     Indication: Product used for unknown indication
     Dosage: 20 MG, OT
     Route: 065
  12. CHOLECALCIFEROL [Suspect]
     Active Substance: CHOLECALCIFEROL
     Indication: Product used for unknown indication
     Dosage: UNK, QMO
     Route: 065
  13. ZOLPIDEM TARTRATE [Suspect]
     Active Substance: ZOLPIDEM TARTRATE
     Indication: Product used for unknown indication
     Dosage: 5 MG (IN THE EVENING)
     Route: 065
  14. SEVELAMER [Suspect]
     Active Substance: SEVELAMER
     Indication: Product used for unknown indication
     Dosage: UNK (3 X 4 TBL WITH FOOD)
     Route: 065
  15. DIGOXIN [Concomitant]
     Active Substance: DIGOXIN
     Indication: Product used for unknown indication
     Dosage: UNK
     Route: 065

REACTIONS (23)
  - Hypotension [Recovered/Resolved]
  - Encephalomalacia [Unknown]
  - C-reactive protein increased [Unknown]
  - Haematocrit decreased [Unknown]
  - Platelet count decreased [Unknown]
  - International normalised ratio increased [Unknown]
  - Procalcitonin abnormal [Unknown]
  - Device related sepsis [Unknown]
  - Tachycardia [Unknown]
  - Splenomegaly [Unknown]
  - Dysarthria [Unknown]
  - Dysphagia [Unknown]
  - Malaise [Unknown]
  - Laboratory test abnormal [Unknown]
  - Disease progression [Unknown]
  - Monocyte count increased [Unknown]
  - Lymphocyte count increased [Unknown]
  - PCO2 decreased [Unknown]
  - White blood cell count increased [Unknown]
  - Oxygen saturation decreased [Unknown]
  - Cough [Unknown]
  - PO2 decreased [Unknown]
  - Asthenia [Unknown]

NARRATIVE: CASE EVENT DATE: 20200901
